FAERS Safety Report 19060786 (Version 3)
Quarter: 2021Q3

REPORT INFORMATION
  Report Type: Report from Study
  Country: US (occurrence: US)
  Receive Date: 20210325
  Receipt Date: 20210920
  Transmission Date: 20211014
  Serious: No
  Sender: FDA-Public Use
  Company Number: US-TAKEDA-2021TUS017911

PATIENT
  Sex: Male
  Weight: 78 kg

DRUGS (12)
  1. FLUCELVAX QUADRIVALENT [Concomitant]
  2. VALACYCLOVIR [Concomitant]
     Active Substance: VALACYCLOVIR HYDROCHLORIDE
  3. FINASTERIDE. [Concomitant]
     Active Substance: FINASTERIDE
  4. MOMETASONE [Concomitant]
     Active Substance: MOMETASONE
  5. HUMAN NORMAL IMMUNOGLOBULIN; LIQUID [Suspect]
     Active Substance: HUMAN IMMUNOGLOBULIN G
     Indication: IMMUNODEFICIENCY COMMON VARIABLE
     Dosage: 30 GRAM, Q4WEEKS
     Route: 042
     Dates: start: 20130829
  6. CEFDINIR. [Concomitant]
     Active Substance: CEFDINIR
  7. NORMAL SALINE [Concomitant]
     Active Substance: SODIUM CHLORIDE
  8. ACETAMINOPHEN. [Concomitant]
     Active Substance: ACETAMINOPHEN
  9. DIPHENHYDRAMINE. [Concomitant]
     Active Substance: DIPHENHYDRAMINE
  10. EPINEPHRINE. [Concomitant]
     Active Substance: EPINEPHRINE
  11. LANSOPRAZOLE. [Concomitant]
     Active Substance: LANSOPRAZOLE
  12. FAMOTIDINE. [Concomitant]
     Active Substance: FAMOTIDINE

REACTIONS (3)
  - Pain in extremity [Unknown]
  - Paraesthesia [Unknown]
  - Sinusitis [Unknown]
